FAERS Safety Report 4599969-4 (Version None)
Quarter: 2005Q1

REPORT INFORMATION
  Report Type: 
  Country: None (occurrence: None)
  Receive Date: 20050303
  Receipt Date: 20050215
  Transmission Date: 20050727
  Serious: Yes (Other)
  Sender: FDA-Public Use
  Company Number: T05-CAN-00847-01

PATIENT
  Age: 55 Year
  Sex: Female

DRUGS (14)
  1. CELEXA [Suspect]
     Indication: CORONARY ARTERY DISEASE
     Dosage: 20 MG QD PO
     Route: 048
     Dates: end: 20050131
  2. CELEXA [Suspect]
     Indication: DEPRESSION
     Dosage: 20 MG QD PO
     Route: 048
     Dates: end: 20050131
  3. CELEXA [Suspect]
     Indication: CORONARY ARTERY DISEASE
     Dosage: 20 MG BID PO
     Route: 048
     Dates: start: 20050201, end: 20050211
  4. CELEXA [Suspect]
     Indication: DEPRESSION
     Dosage: 20 MG BID PO
     Route: 048
     Dates: start: 20050201, end: 20050211
  5. CELEXA [Suspect]
     Indication: CORONARY ARTERY DISEASE
     Dosage: 20 MG QD PO
     Route: 048
     Dates: start: 20050212
  6. CELEXA [Suspect]
     Indication: DEPRESSION
     Dosage: 20 MG QD PO
     Route: 048
     Dates: start: 20050212
  7. WARFARIN [Suspect]
     Indication: ATRIAL FIBRILLATION
     Dosage: 4 MG QD PO
     Route: 048
     Dates: end: 20050209
  8. WARFARIN [Suspect]
     Indication: HEART VALVE REPLACEMENT
     Dosage: 4 MG QD PO
     Route: 048
     Dates: end: 20050209
  9. WARFARIN [Suspect]
     Indication: ATRIAL FIBRILLATION
     Dosage: 2 MG QD PO
     Route: 048
     Dates: start: 20050210, end: 20050210
  10. WARFARIN [Suspect]
     Indication: HEART VALVE REPLACEMENT
     Dosage: 2 MG QD PO
     Route: 048
     Dates: start: 20050210, end: 20050210
  11. WARFARIN [Suspect]
     Indication: ATRIAL FIBRILLATION
     Dosage: 3 MG QD PO
     Route: 048
     Dates: start: 20050211, end: 20050214
  12. WARFARIN [Suspect]
     Indication: HEART VALVE REPLACEMENT
     Dosage: 3 MG QD PO
     Route: 048
     Dates: start: 20050211, end: 20050214
  13. WARFARIN [Suspect]
     Indication: ATRIAL FIBRILLATION
     Dates: start: 20050215
  14. WARFARIN [Suspect]
     Indication: HEART VALVE REPLACEMENT
     Dates: start: 20050215

REACTIONS (4)
  - CONTUSION [None]
  - DRUG INTERACTION [None]
  - HAEMORRHAGIC DIATHESIS [None]
  - INTERNATIONAL NORMALISED RATIO INCREASED [None]
